FAERS Safety Report 9440676 (Version 3)
Quarter: 2014Q1

REPORT INFORMATION
  Report Type: Spontaneous
  Country: US (occurrence: US)
  Receive Date: 20130805
  Receipt Date: 20140322
  Transmission Date: 20141002
  Serious: Yes (Hospitalization, Other)
  Sender: FDA-Public Use
  Company Number: US-009507513-1307USA017100

PATIENT
  Sex: Female
  Weight: 79.37 kg

DRUGS (1)
  1. NUVARING [Suspect]
     Indication: CONTRACEPTION
     Dosage: UNK
     Route: 067
     Dates: start: 20090728, end: 20091014

REACTIONS (14)
  - Abortion spontaneous [Recovered/Resolved]
  - Deep vein thrombosis [Unknown]
  - Coagulopathy [Unknown]
  - Maternal exposure before pregnancy [Unknown]
  - Deep vein thrombosis [Unknown]
  - Deep vein thrombosis [Unknown]
  - Deep vein thrombosis [Unknown]
  - Chest pain [Unknown]
  - Back pain [Unknown]
  - Vomiting in pregnancy [Unknown]
  - Urinary tract infection [Unknown]
  - Back disorder [Unknown]
  - Headache [Unknown]
  - Sexually transmitted disease [Unknown]
